FAERS Safety Report 8887286 (Version 1)
Quarter: 2012Q4

REPORT INFORMATION
  Report Type: Spontaneous
  Country: US (occurrence: None)
  Receive Date: 20121105
  Receipt Date: 20121105
  Transmission Date: 20130627
  Serious: Yes (Hospitalization)
  Sender: FDA-Public Use
  Company Number: None

PATIENT
  Age: 24 Year
  Sex: Female
  Weight: 87.09 kg

DRUGS (1)
  1. TORADOL [Suspect]
     Dates: start: 20120731, end: 20120731

REACTIONS (2)
  - Headache [None]
  - White blood cell count increased [None]
